FAERS Safety Report 16931806 (Version 1)
Quarter: 2019Q4

REPORT INFORMATION
  Report Type: Other
  Country: FR (occurrence: FR)
  Receive Date: 20191017
  Receipt Date: 20191017
  Transmission Date: 20200122
  Serious: Yes (Life-Threatening, Other)
  Sender: FDA-Public Use
  Company Number: FR-VALIDUS PHARMACEUTICALS LLC-FR-2019VAL000585

PATIENT

DRUGS (8)
  1. MOLSIDOMINE [Suspect]
     Active Substance: MOLSIDOMINE
     Indication: CEREBRAL ISCHAEMIA
     Dosage: UNK
     Route: 048
     Dates: start: 20190804, end: 20190814
  2. PARACETAMOL [Concomitant]
     Active Substance: ACETAMINOPHEN
     Indication: PRODUCT USED FOR UNKNOWN INDICATION
     Dosage: UNK
  3. CLAFORAN [Suspect]
     Active Substance: CEFOTAXIME SODIUM
     Indication: PNEUMONIA
     Dosage: UNK
     Route: 030
     Dates: start: 20190805, end: 20190810
  4. NIMODIPINE. [Suspect]
     Active Substance: NIMODIPINE
     Indication: CEREBRAL ISCHAEMIA
     Dosage: UNK
     Route: 042
     Dates: start: 20190804, end: 20190814
  5. LOVENOX [Concomitant]
     Active Substance: ENOXAPARIN SODIUM
     Indication: PRODUCT USED FOR UNKNOWN INDICATION
     Dosage: UNK
  6. PROPOFOL. [Concomitant]
     Active Substance: PROPOFOL
     Indication: PRODUCT USED FOR UNKNOWN INDICATION
     Dosage: UNK
  7. TIBERAL [Suspect]
     Active Substance: ORNIDAZOLE
     Indication: PNEUMONIA
     Dosage: UNK
     Route: 042
     Dates: start: 20190805, end: 20190811
  8. NORADRENALINE                      /00127501/ [Concomitant]
     Active Substance: NOREPINEPHRINE
     Indication: PRODUCT USED FOR UNKNOWN INDICATION
     Dosage: UNK

REACTIONS (1)
  - Immune thrombocytopenic purpura [Recovered/Resolved]

NARRATIVE: CASE EVENT DATE: 20190810
